FAERS Safety Report 19115113 (Version 1)
Quarter: 2021Q2

REPORT INFORMATION
  Report Type: Spontaneous
  Country: CN (occurrence: CN)
  Receive Date: 20210408
  Receipt Date: 20210408
  Transmission Date: 20210717
  Serious: Yes (Hospitalization, Other)
  Sender: FDA-Public Use
  Company Number: CN-VALIDUS PHARMACEUTICALS LLC-CN-2021VAL000526

PATIENT
  Age: 31 Year
  Sex: Female

DRUGS (5)
  1. PETHIDINE HYDROCHLORIDE [Suspect]
     Active Substance: MEPERIDINE HYDROCHLORIDE
     Indication: PRODUCT USED FOR UNKNOWN INDICATION
     Dosage: 30 MG, UNK
     Route: 042
  2. LIDOCAINE. [Suspect]
     Active Substance: LIDOCAINE
     Dosage: 200 MG, TOTAL USED
     Route: 065
  3. POLYGELINE [Suspect]
     Active Substance: POLYGELINE
     Indication: POST LUMBAR PUNCTURE SYNDROME
  4. LIDOCAINE. [Suspect]
     Active Substance: LIDOCAINE
     Indication: ANAESTHESIA
     Dosage: 2%, INITIAL DOST OF 60 MG WITHOUT EPINEPHRINE
     Route: 065
  5. POLYGELINE [Suspect]
     Active Substance: POLYGELINE
     Indication: CSF VOLUME
     Dosage: 20 ML, INJECTION
     Route: 037

REACTIONS (8)
  - Seizure [Unknown]
  - Loss of consciousness [Unknown]
  - Pain [Unknown]
  - Paraesthesia [Unknown]
  - Intentional product misuse [Unknown]
  - Hypoaesthesia [Unknown]
  - Exposure during pregnancy [Unknown]
  - Oedema peripheral [Unknown]
